FAERS Safety Report 12661085 (Version 2)
Quarter: 2016Q3

REPORT INFORMATION
  Report Type: Spontaneous
  Country: US (occurrence: US)
  Receive Date: 20160817
  Receipt Date: 20160901
  Transmission Date: 20161109
  Serious: No
  Sender: FDA-Public Use
  Company Number: US-RELYPSA-RLY2016000557

PATIENT
  Age: 63 Year
  Sex: Female

DRUGS (17)
  1. DAPSONE. [Concomitant]
     Active Substance: DAPSONE
  2. MULTIVITAMIN                       /00097801/ [Concomitant]
     Active Substance: VITAMINS
  3. MYCOPHENOLIC ACID. [Concomitant]
     Active Substance: MYCOPHENOLIC ACID
  4. XANAX [Concomitant]
     Active Substance: ALPRAZOLAM
  5. COREG [Concomitant]
     Active Substance: CARVEDILOL
  6. NOVOLIN N [Concomitant]
     Active Substance: INSULIN HUMAN
  7. SYNTHROID [Concomitant]
     Active Substance: LEVOTHYROXINE SODIUM
  8. BONIVA [Concomitant]
     Active Substance: IBANDRONATE SODIUM
  9. LASIX [Concomitant]
     Active Substance: FUROSEMIDE
  10. PREDNISONE. [Concomitant]
     Active Substance: PREDNISONE
  11. FAMOTIDINE. [Concomitant]
     Active Substance: FAMOTIDINE
  12. TACROLIMUS. [Concomitant]
     Active Substance: TACROLIMUS
  13. VELTASSA [Suspect]
     Active Substance: PATIROMER
     Indication: HYPERKALAEMIA
     Dosage: 8.4 G, O.D.
     Route: 048
     Dates: start: 20160413
  14. FOSAMAX [Concomitant]
     Active Substance: ALENDRONATE SODIUM
  15. PROCRIT [Concomitant]
     Active Substance: ERYTHROPOIETIN
  16. ASPIRIN                            /00002701/ [Concomitant]
     Active Substance: ASPIRIN
  17. LIPITOR [Concomitant]
     Active Substance: ATORVASTATIN CALCIUM

REACTIONS (3)
  - Muscle spasms [Unknown]
  - Constipation [Unknown]
  - Diarrhoea [Unknown]

NARRATIVE: CASE EVENT DATE: 20160413
